FAERS Safety Report 7252977 (Version 5)
Quarter: 2013Q1

REPORT INFORMATION
  Report Type: Report from Study
  Country: JP (occurrence: JP)
  Receive Date: 20100122
  Receipt Date: 20130208
  Transmission Date: 20140127
  Serious: Yes (Hospitalization)
  Sender: FDA-Public Use
  Company Number: PHHY2009JP50426

PATIENT
  Age: 59 Year
  Sex: Female

DRUGS (17)
  1. AMN107 [Suspect]
     Indication: CHRONIC MYELOID LEUKAEMIA
     Dosage: 800 MG, DAILY
     Route: 048
     Dates: start: 20091112, end: 20091113
  2. AMN107 [Suspect]
     Dosage: 400 MG, DAILY
     Route: 048
     Dates: start: 20091114, end: 20091114
  3. AMN107 [Suspect]
     Dosage: 200 MG, DAILY
     Route: 048
     Dates: start: 20091208, end: 20100106
  4. AMN107 [Suspect]
     Dosage: 200 MG, DAILY
     Route: 048
     Dates: start: 20100127, end: 20100324
  5. AMN107 [Suspect]
     Dosage: 800 UNK, UNK
     Route: 048
     Dates: start: 20100325, end: 20120305
  6. AMN107 [Suspect]
     Dosage: 400 MG, BID
     Route: 048
     Dates: start: 20120306
  7. TEGRETOL [Concomitant]
     Route: 048
     Dates: start: 20061222
  8. AMLODIN [Concomitant]
     Route: 048
     Dates: start: 20061222
  9. NIFE - SLOW RELEASE [Concomitant]
     Route: 048
     Dates: start: 20061222
  10. TRIHEXIN [Concomitant]
     Route: 048
     Dates: start: 20061222
  11. SULPIRIDE [Concomitant]
     Route: 048
     Dates: start: 20061222
  12. MAJORPIN [Concomitant]
     Route: 048
     Dates: start: 20061222
  13. LITHIUM CARBONATE [Concomitant]
     Route: 048
     Dates: start: 20061222
  14. HIBERNA [Concomitant]
     Route: 048
     Dates: start: 20061222
  15. RISPERIDONE [Concomitant]
     Route: 048
     Dates: start: 20061222
  16. FUROSEMIDE [Concomitant]
     Route: 048
     Dates: start: 20061222
  17. MUCODYNE [Concomitant]
     Indication: BRONCHITIS
     Dates: start: 20100106, end: 20100115

REACTIONS (3)
  - Pneumonia [Recovered/Resolved]
  - Tremor [Recovering/Resolving]
  - Bronchitis [Recovered/Resolved]
